FAERS Safety Report 9027073 (Version 2)
Quarter: 2013Q2

REPORT INFORMATION
  Report Type: Spontaneous
  Country: US (occurrence: US)
  Receive Date: 20130123
  Receipt Date: 20130405
  Transmission Date: 20140414
  Serious: No
  Sender: FDA-Public Use
  Company Number: US-009507513-1301USA008963

PATIENT
  Age: 88 Year
  Sex: Male

DRUGS (2)
  1. FOSAMAX [Suspect]
     Indication: BONE LOSS
     Dosage: 70 MG, QW
     Route: 048
  2. VITAMINS (UNSPECIFIED) [Concomitant]

REACTIONS (1)
  - Bone density decreased [Unknown]
